FAERS Safety Report 4558132-3 (Version None)
Quarter: 2005Q1

REPORT INFORMATION
  Report Type: 
  Country: None (occurrence: None)
  Receive Date: 20050121
  Receipt Date: 20050106
  Transmission Date: 20050727
  Serious: Yes (Other)
  Sender: FDA-Public Use
  Company Number: 200510056JP

PATIENT
  Age: 47 Year
  Sex: Female

DRUGS (2)
  1. KETEK [Suspect]
     Indication: NASOPHARYNGITIS
     Route: 048
     Dates: start: 20050101, end: 20050103
  2. VITAMIN H [Concomitant]

REACTIONS (7)
  - DYSPNOEA [None]
  - FEELING HOT [None]
  - HEART RATE IRREGULAR [None]
  - INITIAL INSOMNIA [None]
  - INSOMNIA [None]
  - PALPITATIONS [None]
  - SELF-MEDICATION [None]
